FAERS Safety Report 15665219 (Version 1)
Quarter: 2018Q4

REPORT INFORMATION
  Report Type: Spontaneous
  Country: US (occurrence: US)
  Receive Date: 20181116
  Receipt Date: 20181116
  Transmission Date: 20190205
  Serious: Yes (Hospitalization, Disabling, Other)
  Sender: FDA-Public Use
  Company Number: None

PATIENT
  Age: 37 Year
  Sex: Female
  Weight: 92.08 kg

DRUGS (5)
  1. PRISTIQ EXTENDED-RELEASE [Concomitant]
     Active Substance: DESVENLAFAXINE SUCCINATE
  2. METHADONE [Concomitant]
     Active Substance: METHADONE HYDROCHLORIDE
  3. OMNISCAN [Suspect]
     Active Substance: GADODIAMIDE
     Indication: NUCLEAR MAGNETIC RESONANCE IMAGING
     Dosage: OTHER FREQUENCY:FOR USE DURING MRI;?
     Route: 042
  4. OMNIPAQUE [Suspect]
     Active Substance: IOHEXOL
  5. SEROQUEL [Concomitant]
     Active Substance: QUETIAPINE FUMARATE

REACTIONS (8)
  - Malaise [None]
  - Pain [None]
  - Impaired quality of life [None]
  - Toxicity to various agents [None]
  - Depressed mood [None]
  - General physical health deterioration [None]
  - Arthropathy [None]
  - Autoimmune disorder [None]

NARRATIVE: CASE EVENT DATE: 20181116
